FAERS Safety Report 19200008 (Version 1)
Quarter: 2021Q2

REPORT INFORMATION
  Report Type: Spontaneous
  Country: JP (occurrence: JP)
  Receive Date: 20210430
  Receipt Date: 20210430
  Transmission Date: 20210717
  Serious: Yes (Life-Threatening, Hospitalization, Other)
  Sender: FDA-Public Use
  Company Number: JP-GLAXOSMITHKLINE-JP2021JPN094832

PATIENT
  Sex: Female
  Weight: 82 kg

DRUGS (26)
  1. PREDONINE [Concomitant]
     Active Substance: PREDNISOLONE
     Indication: SYSTEMIC LUPUS ERYTHEMATOSUS
     Dosage: 9 MG, 1D
     Route: 048
     Dates: start: 20180414, end: 20180825
  2. EPADEL [Concomitant]
     Active Substance: ICOSAPENT
     Dosage: UNK
  3. EQUA [Concomitant]
     Active Substance: VILDAGLIPTIN
     Dosage: UNK
  4. FERROMIA TABLETS [Concomitant]
     Dosage: UNK
  5. BENLYSTA [Suspect]
     Active Substance: BELIMUMAB
     Dosage: 200 MG, WE
     Route: 058
     Dates: end: 20190615
  6. PREDONINE [Concomitant]
     Active Substance: PREDNISOLONE
     Dosage: 7 MG, 1D
     Route: 048
     Dates: start: 20180826, end: 20181020
  7. ALDACTONE?A TABLETS [Concomitant]
     Dosage: UNK
  8. WARFARIN (JAPANESE TRADENAME) [Concomitant]
     Active Substance: WARFARIN POTASSIUM
     Dosage: UNK
  9. BENLYSTA [Suspect]
     Active Substance: BELIMUMAB
     Dosage: 200 MG, WE
     Route: 058
     Dates: start: 20181021, end: 20190228
  10. TAKECAB TABLETS [Concomitant]
     Active Substance: VONOPRAZAN FUMARATE
     Dosage: UNK
  11. BISOPROLOL FUMARATE TABLET [Concomitant]
     Dosage: UNK
  12. RETICOLAN [Concomitant]
     Active Substance: METHYLCOBALAMIN
     Dosage: UNK
  13. ALFAROL CAPSULE [Concomitant]
     Dosage: UNK
  14. PELEX [Concomitant]
     Indication: BRONCHITIS
     Dosage: UNK
  15. PREDONINE [Concomitant]
     Active Substance: PREDNISOLONE
     Dosage: 6 MG, 1D
     Route: 048
     Dates: start: 20181021
  16. LIPITOR TABLETS [Concomitant]
     Dosage: UNK
  17. SYMBICORT [Concomitant]
     Active Substance: BUDESONIDE\FORMOTEROL FUMARATE DIHYDRATE
     Dosage: UNK
  18. BENLYSTA [Suspect]
     Active Substance: BELIMUMAB
     Indication: SYSTEMIC LUPUS ERYTHEMATOSUS
     Dosage: 200 MG, WE
     Route: 058
     Dates: start: 20180420
  19. ODRIC [Concomitant]
     Active Substance: TRANDOLAPRIL
     Dosage: UNK
  20. LUPRAC [Concomitant]
     Active Substance: TORSEMIDE
     Dosage: UNK
  21. FEBURIC TABLETS [Concomitant]
     Active Substance: FEBUXOSTAT
     Dosage: UNK
  22. DILTIAZEM HYDROCHLORIDE R [Concomitant]
     Active Substance: DILTIAZEM HYDROCHLORIDE
     Dosage: UNK
  23. MEDICON (DEXTROMETHORPHAN HYDROBROMIDE HYDRATE) [Concomitant]
     Indication: BRONCHITIS
     Dosage: UNK
  24. MUCOSOLATE [Concomitant]
     Active Substance: AMBROXOL HYDROCHLORIDE
     Indication: BRONCHITIS
     Dosage: UNK
  25. URSO TABLETS [Concomitant]
     Dosage: UNK
  26. AMITIZA CAPSULE [Concomitant]
     Dosage: UNK

REACTIONS (2)
  - Cardiac failure [Recovered/Resolved]
  - Cardiac failure congestive [Not Recovered/Not Resolved]

NARRATIVE: CASE EVENT DATE: 20190429
